FAERS Safety Report 11517556 (Version 1)
Quarter: 2015Q3

REPORT INFORMATION
  Report Type: Spontaneous
  Country: US (occurrence: US)
  Receive Date: 20150917
  Receipt Date: 20150917
  Transmission Date: 20151125
  Serious: Yes (Hospitalization)
  Sender: FDA-Public Use
  Company Number: US-SA-2015SA139167

PATIENT
  Age: 42 Year
  Sex: Female
  Weight: 59.1 kg

DRUGS (6)
  1. EPIPEN [Concomitant]
     Active Substance: EPINEPHRINE
     Indication: ANAPHYLACTIC REACTION
     Route: 042
     Dates: start: 20150516
  2. DIPHENHYDRAMINE. [Concomitant]
     Active Substance: DIPHENHYDRAMINE
     Indication: ANAPHYLACTIC REACTION
     Dosage: DOSE:50 MILLIGRAM(S)/MILLILITRE
     Route: 042
     Dates: start: 20150516
  3. IBUPROFEN. [Concomitant]
     Active Substance: IBUPROFEN
     Dosage: AS DIRECTED
     Route: 048
     Dates: start: 20150516
  4. FABRAZYME [Suspect]
     Active Substance: AGALSIDASE BETA
     Indication: LIPIDOSIS
     Route: 041
  5. HEPARIN [Concomitant]
     Active Substance: HEPARIN SODIUM
     Indication: FLUSHING
     Dosage: AS DIRECTED DOSE:100 INTERNATIONAL UNIT(S)/MILLILITRE
     Route: 042
     Dates: start: 20150516
  6. NORMAL SALINE [Concomitant]
     Active Substance: SODIUM CHLORIDE
     Indication: MEDICATION DILUTION
     Dosage: AS DIRECTED
     Route: 042
     Dates: start: 20150516

REACTIONS (1)
  - Surgery [Unknown]
